FAERS Safety Report 12268744 (Version 4)
Quarter: 2016Q2

REPORT INFORMATION
  Report Type: Report from Study
  Country: JP (occurrence: JP)
  Receive Date: 20160414
  Receipt Date: 20160429
  Transmission Date: 20160815
  Serious: Yes (Death)
  Sender: FDA-Public Use
  Company Number: JP-PFIZER INC-2016212706

PATIENT
  Age: 50 Year
  Sex: Male

DRUGS (13)
  1. ZIPRASIDONE HCL [Suspect]
     Active Substance: ZIPRASIDONE HYDROCHLORIDE
     Indication: SCHIZOPHRENIA
     Dosage: 40 MG PER DAY, (20 MG CAPSULES TWICE DAILY MORNING AND EVENING)
     Route: 048
     Dates: start: 20160308, end: 20160314
  2. ZIPRASIDONE HCL [Suspect]
     Active Substance: ZIPRASIDONE HYDROCHLORIDE
     Dosage: 60 MG DAILY (20 MG IN MORNING AND 40 MG IN THE EVENING)
     Route: 048
     Dates: start: 20160315, end: 20160315
  3. ZIPRASIDONE HCL [Suspect]
     Active Substance: ZIPRASIDONE HYDROCHLORIDE
     Dosage: 100 MG, DAILY (40 MG IN MORNING AND 60 MG IN THE EVENING)
     Route: 048
     Dates: start: 20160322, end: 20160322
  4. ZIPRASIDONE HCL [Suspect]
     Active Substance: ZIPRASIDONE HYDROCHLORIDE
     Dosage: 120 MG, DAILY (IN THE EVENING)
     Route: 048
     Dates: start: 20160323
  5. TRAZODONE HYDROCHLORIDE. [Suspect]
     Active Substance: TRAZODONE HYDROCHLORIDE
     Indication: SCHIZOPHRENIA
     Dosage: 50 MG, DAILY
     Route: 048
     Dates: start: 20141107
  6. LONASEN [Suspect]
     Active Substance: BLONANSERIN
     Dosage: 24 MG, DAILY
     Route: 048
     Dates: start: 20120421
  7. TEPRENONE [Concomitant]
     Active Substance: TEPRENONE
     Indication: ABDOMINAL PAIN UPPER
     Dosage: 100 MG, DAILY
     Route: 048
     Dates: start: 20130109
  8. INVEGA [Suspect]
     Active Substance: PALIPERIDONE
     Dosage: 12 MG, DAILY
     Route: 048
     Dates: start: 20120309
  9. BENZALIN [Suspect]
     Active Substance: NITRAZEPAM
     Dosage: 5 MG, DAILY
     Route: 048
     Dates: start: 20160301
  10. GOODMIN [Suspect]
     Active Substance: BROTIZOLAM
     Dosage: 0.25 MG, AS NEEDED (AT THE TIME OF SLEEPLESSNESS)
     Route: 048
     Dates: start: 20150731
  11. ZIPRASIDONE HCL [Suspect]
     Active Substance: ZIPRASIDONE HYDROCHLORIDE
     Dosage: 80 MG, DAILY IN THE EVENING
     Route: 048
     Dates: start: 20160316, end: 20160321
  12. SODIUM PICOSULFATE [Concomitant]
     Active Substance: SODIUM PICOSULFATE
     Indication: CONSTIPATION
     Dosage: UNK
     Route: 048
     Dates: start: 20110624
  13. UREA. [Concomitant]
     Active Substance: UREA
     Indication: DRY SKIN
     Dosage: UNK
     Dates: start: 20130325

REACTIONS (1)
  - Accident [Fatal]

NARRATIVE: CASE EVENT DATE: 20160407
